FAERS Safety Report 9961922 (Version 2)
Quarter: 2014Q1

REPORT INFORMATION
  Report Type: Report from Study
  Country: US (occurrence: US)
  Receive Date: 20140305
  Receipt Date: 20140305
  Transmission Date: 20141002
  Serious: No
  Sender: FDA-Public Use
  Company Number: US-ABBVIE-12P-163-0944959-00

PATIENT
  Sex: Female
  Weight: 113.5 kg

DRUGS (6)
  1. HUMIRA [Suspect]
     Indication: CROHN^S DISEASE
     Route: 058
     Dates: start: 2009
  2. HUMIRA [Suspect]
     Route: 058
     Dates: start: 2006, end: 2009
  3. QUESTRAN [Concomitant]
     Indication: DIARRHOEA
  4. OMEPRAZOLE [Concomitant]
     Indication: PRODUCT USED FOR UNKNOWN INDICATION
  5. OTHER MEDICATION(S) [Concomitant]
  6. LANSOPRAZOLE [Concomitant]
     Indication: GASTROOESOPHAGEAL REFLUX DISEASE

REACTIONS (14)
  - Drug ineffective [Not Recovered/Not Resolved]
  - Diarrhoea [Unknown]
  - Abdominal pain [Unknown]
  - Stress [Unknown]
  - Anxiety [Unknown]
  - Spinal osteoarthritis [Unknown]
  - Spinal osteoarthritis [Unknown]
  - Head injury [Unknown]
  - Intervertebral disc protrusion [Not Recovered/Not Resolved]
  - Neck pain [Not Recovered/Not Resolved]
  - Tinnitus [Not Recovered/Not Resolved]
  - Osteoarthritis [Not Recovered/Not Resolved]
  - Headache [Recovered/Resolved]
  - Neck pain [Recovered/Resolved]
